FAERS Safety Report 6741062-6 (Version None)
Quarter: 2010Q2

REPORT INFORMATION
  Report Type: 
  Country: None (occurrence: None)
  Receive Date: 20100525
  Receipt Date: 20100525
  Transmission Date: 20101027
  Serious: No
  Sender: FDA-Public Use
  Company Number: None

PATIENT
  Age: 27 Year
  Sex: Female
  Weight: 68.9467 kg

DRUGS (3)
  1. PANTOPRAZOLE [Suspect]
     Indication: DYSPEPSIA
     Dosage: 40 MG DAILY PO
     Route: 048
     Dates: start: 20100521, end: 20100521
  2. LEVOTHYROXINE SODIUM [Concomitant]
  3. PRENATAL VITAMINS [Concomitant]

REACTIONS (2)
  - DIZZINESS [None]
  - NAUSEA [None]
